FAERS Safety Report 4825748-6 (Version None)
Quarter: 2005Q4

REPORT INFORMATION
  Report Type: 
  Country: None (occurrence: None)
  Receive Date: 20051111
  Receipt Date: 20050927
  Transmission Date: 20060501
  Serious: Yes (Disabling)
  Sender: FDA-Public Use
  Company Number: US-MERCK-0509USA04298

PATIENT
  Age: 61 Year
  Sex: Female

DRUGS (5)
  1. FOSAMAX [Suspect]
     Indication: OSTEOPENIA
     Route: 048
     Dates: start: 20031101, end: 20050926
  2. FOSAMAX [Suspect]
     Indication: OSTEOPOROSIS
     Route: 048
     Dates: start: 20031101, end: 20050926
  3. EFFEXOR [Concomitant]
     Route: 065
  4. LIPITOR [Concomitant]
     Route: 065
  5. VOLTAREN [Concomitant]
     Route: 065

REACTIONS (1)
  - OSTEONECROSIS [None]
